FAERS Safety Report 7798361-9 (Version None)
Quarter: 2011Q4

REPORT INFORMATION
  Report Type: 
  Country: None (occurrence: None)
  Receive Date: 20111005
  Receipt Date: 20110929
  Transmission Date: 20120403
  Serious: Yes (Other)
  Sender: FDA-Public Use
  Company Number: SG-BAYER-2011-092855

PATIENT
  Age: 15 Year
  Sex: Male

DRUGS (6)
  1. CIPROBAY 100 INFUSION 100 MG/50 ML [Suspect]
  2. AMOXICILLIN [Suspect]
  3. CEFAZOLIN [Suspect]
  4. ERYTHROMYCIN [Suspect]
  5. CLINDAMYCIN [Suspect]
  6. VANCOMYCIN [Suspect]

REACTIONS (1)
  - PERIORBITAL OEDEMA [None]
